FAERS Safety Report 6101500 (Version 13)
Quarter: 2012Q4

REPORT INFORMATION
  Report Type: 
  Country: US (occurrence: US)
  Receive Date: 20060808
  Receipt Date: 20121114
  Transmission Date: 20130627
  Serious: Yes (Death, Other)
  Sender: FDA-Public Use
  Company Number: PHEH2006US09632

PATIENT
  Age: 63 None
  Sex: Female
  Weight: 66.5 kg

DRUGS (30)
  1. AREDIA [Suspect]
     Indication: METASTASES TO BONE
     Dosage: 90 mg, QMO
     Route: 042
     Dates: start: 19981204, end: 200204
  2. AREDIA [Suspect]
     Indication: HYPERCALCAEMIA OF MALIGNANCY
     Dates: start: 2006
  3. ZOMETA [Suspect]
     Indication: BREAST CANCER METASTATIC
     Dosage: 4 mg, QMO
     Route: 042
     Dates: start: 200204, end: 2006
  4. FOSAMAX [Suspect]
  5. TAMOXIFEN [Concomitant]
     Indication: BREAST CANCER
  6. FEMARA [Concomitant]
     Indication: BREAST CANCER
     Dosage: 2.5 mg, QD
  7. TRAZODONE [Concomitant]
  8. ZOLOFT [Concomitant]
     Indication: DEPRESSION
  9. ANASTROZOLE (ARMIDEX) [Concomitant]
     Dates: start: 200008
  10. XELODA [Concomitant]
     Indication: BREAST CANCER
     Dates: start: 2005
  11. TAXOL [Concomitant]
     Indication: BREAST CANCER
  12. PAXIL [Concomitant]
     Dosage: 20 mg, UNK
  13. VIOXX [Concomitant]
     Dosage: 25 mg, UNK
  14. ELMIRON [Concomitant]
     Indication: CYSTITIS INTERSTITIAL
     Dosage: 100 mg, UNK
  15. ABRAXANE [Concomitant]
  16. COMPAZINE [Concomitant]
  17. CIPRO [Concomitant]
  18. REPLENS [Concomitant]
  19. EFFEXOR [Concomitant]
  20. MULTIVIT [Concomitant]
  21. VITAMIN B6 [Concomitant]
  22. FOLIC ACID [Concomitant]
  23. ALEVE                              /00256202/ [Concomitant]
  24. CALCIUM [Concomitant]
  25. TYLENOL [Concomitant]
  26. PROTONIX [Concomitant]
  27. ACTONEL [Concomitant]
  28. TRAMADOL [Concomitant]
  29. PROVERA [Concomitant]
  30. DURAGESIC [Concomitant]

REACTIONS (83)
  - Death [Fatal]
  - Tubulointerstitial nephritis [Unknown]
  - Osteonecrosis of jaw [Unknown]
  - General physical health deterioration [Unknown]
  - Pain [Unknown]
  - Anxiety [Unknown]
  - Decreased interest [Unknown]
  - Osteomyelitis [Recovering/Resolving]
  - Inflammation [Recovering/Resolving]
  - Excessive granulation tissue [Recovering/Resolving]
  - Primary sequestrum [Recovering/Resolving]
  - Bacterial test positive [Recovering/Resolving]
  - Bone disorder [Recovering/Resolving]
  - Bone formation increased [Recovering/Resolving]
  - Impaired healing [Unknown]
  - Gingivitis [Unknown]
  - Oral infection [Unknown]
  - Burning sensation [Unknown]
  - Fracture [Unknown]
  - Disease progression [Unknown]
  - Tumour marker increased [Unknown]
  - Metastases to liver [Unknown]
  - Bone pain [Unknown]
  - Diarrhoea [Unknown]
  - Dry mouth [Unknown]
  - Salivary gland disorder [Unknown]
  - Oral candidiasis [Recovering/Resolving]
  - Oral discomfort [Unknown]
  - Ageusia [Recovering/Resolving]
  - Anosmia [Recovering/Resolving]
  - Gastrooesophageal reflux disease [Unknown]
  - Skin atrophy [Unknown]
  - Breast atrophy [Unknown]
  - Lung neoplasm malignant [Unknown]
  - Second primary malignancy [Unknown]
  - Decreased appetite [Unknown]
  - Atelectasis [Unknown]
  - Rash [Unknown]
  - Skin exfoliation [Unknown]
  - Irritable bowel syndrome [Unknown]
  - Dehydration [Unknown]
  - Hypotension [Unknown]
  - Leukopenia [Unknown]
  - Neutropenia [Unknown]
  - Anaemia [Unknown]
  - Alopecia [Unknown]
  - Upper respiratory tract infection [Unknown]
  - Rhinitis allergic [Unknown]
  - Urinary tract infection [Unknown]
  - Dry eye [Unknown]
  - Hypothyroidism [Unknown]
  - Cardiac flutter [Unknown]
  - Bladder pain [Unknown]
  - Dysuria [Unknown]
  - Disorientation [Unknown]
  - Dizziness [Unknown]
  - Headache [Unknown]
  - Arteriosclerosis [Unknown]
  - Lymphadenopathy mediastinal [Unknown]
  - Gait disturbance [Unknown]
  - Vision blurred [Unknown]
  - Confusional state [Unknown]
  - Weight decreased [Unknown]
  - Amnesia [Unknown]
  - Tremor [Unknown]
  - Constipation [Unknown]
  - Nausea [Unknown]
  - Dyspnoea exertional [Unknown]
  - Hypopnoea [Unknown]
  - Haemorrhoids [Unknown]
  - Haematuria [Unknown]
  - Vaginal discharge [Unknown]
  - Facial pain [Unknown]
  - Nasal congestion [Unknown]
  - Abdominal pain [Unknown]
  - Vaginal infection [Unknown]
  - Mouth ulceration [Unknown]
  - Dyspepsia [Unknown]
  - Sleep apnoea syndrome [Unknown]
  - Mucosal inflammation [Unknown]
  - Palmar-plantar erythrodysaesthesia syndrome [Unknown]
  - Fistula [Unknown]
  - Bone decalcification [Unknown]
